FAERS Safety Report 4564020-9 (Version None)
Quarter: 2005Q1

REPORT INFORMATION
  Report Type: 
  Country: None (occurrence: None)
  Receive Date: 20050126
  Receipt Date: 20050110
  Transmission Date: 20050727
  Serious: Yes (Hospitalization)
  Sender: FDA-Public Use
  Company Number: 204015

PATIENT
  Age: 33 Year
  Sex: Female
  Weight: 70 kg

DRUGS (6)
  1. AVONEX [Suspect]
     Indication: MULTIPLE SCLEROSIS
     Dosage: 30 UG; QW; IM
     Route: 030
     Dates: start: 20010301, end: 20021101
  2. AVONEX [Suspect]
     Indication: MULTIPLE SCLEROSIS
     Dosage: 30 UG; QW; IM
     Route: 030
     Dates: start: 20040301
  3. REBIF [Concomitant]
  4. DECENTAN [Concomitant]
  5. COPAXONE [Concomitant]
  6. RISPERDAL [Concomitant]

REACTIONS (9)
  - ALOPECIA [None]
  - AORTIC VALVE DISEASE [None]
  - DEEP VEIN THROMBOSIS [None]
  - DYSPNOEA [None]
  - HEART VALVE INSUFFICIENCY [None]
  - INFLUENZA LIKE ILLNESS [None]
  - INTRACARDIAC THROMBUS [None]
  - MULTIPLE SCLEROSIS RELAPSE [None]
  - PERIPHERAL EMBOLISM [None]
